FAERS Safety Report 5257306-6 (Version None)
Quarter: 2007Q1

REPORT INFORMATION
  Report Type: 
  Country: None (occurrence: None)
  Receive Date: 20070302
  Receipt Date: 20070220
  Transmission Date: 20070707
  Serious: Yes (Other)
  Sender: FDA-Public Use
  Company Number: 070220-0000211

PATIENT
  Age: 32 Year
  Sex: Female

DRUGS (1)
  1. DACTINOMYCIN [Suspect]
     Indication: BENIGN HYDATIDIFORM MOLE
     Dosage: INJ

REACTIONS (3)
  - BLINDNESS [None]
  - OPTIC NEUROPATHY [None]
  - SCOTOMA [None]
